FAERS Safety Report 5385041-2 (Version None)
Quarter: 2007Q3

REPORT INFORMATION
  Report Type: 
  Country: None (occurrence: None)
  Receive Date: 20070712
  Receipt Date: 20070705
  Transmission Date: 20080115
  Serious: Yes (Hospitalization)
  Sender: FDA-Public Use
  Company Number: PHBS2007RU11378

PATIENT
  Age: 70 Year
  Sex: Female

DRUGS (3)
  1. MIACALCIN [Suspect]
     Indication: OSTEOPOROSIS
     Dosage: UNK, UNK
     Route: 045
     Dates: start: 20070101
  2. AMARYL [Concomitant]
     Indication: DIABETES MELLITUS
  3. EUTHYROX [Concomitant]
     Indication: HYPOTHYROIDISM

REACTIONS (1)
  - DYSTONIA [None]
